FAERS Safety Report 9411065 (Version 2)
Quarter: 2013Q3

REPORT INFORMATION
  Report Type: Report from Study
  Country: US (occurrence: US)
  Receive Date: 20130720
  Receipt Date: 20130729
  Transmission Date: 20140515
  Serious: Yes (Hospitalization, Other)
  Sender: FDA-Public Use
  Company Number: US-ASTRAZENECA-2013SE53302

PATIENT
  Age: 64 Year
  Sex: Female
  Weight: 55.8 kg

DRUGS (22)
  1. SYMBICORT [Suspect]
     Indication: CHRONIC OBSTRUCTIVE PULMONARY DISEASE
     Dosage: 160/4.5 MCG 2 PUFFS BID
     Route: 055
  2. NEXIUM [Suspect]
     Indication: GASTROOESOPHAGEAL REFLUX DISEASE
     Route: 048
     Dates: start: 2011
  3. TOPROL XL [Suspect]
     Indication: HYPERTENSION
     Route: 048
  4. TOPROL XL [Suspect]
     Indication: HYPERTENSION
     Route: 048
  5. SEROQUEL [Suspect]
     Indication: INSOMNIA
     Route: 048
  6. SEROQUEL [Suspect]
     Indication: INSOMNIA
     Route: 048
  7. XANAX [Concomitant]
     Indication: PANIC ATTACK
     Route: 048
  8. RESTORIL [Concomitant]
     Indication: SLEEP DISORDER
     Route: 048
     Dates: start: 2003
  9. MAGNESIUM [Concomitant]
     Dosage: 1 TID
     Route: 048
     Dates: start: 201304
  10. MAGNESIUM [Concomitant]
     Route: 048
  11. POTASSIUM [Concomitant]
     Route: 048
     Dates: start: 201304
  12. FERROUS SULFATE [Concomitant]
     Route: 048
     Dates: start: 201304
  13. VITAMIN D [Concomitant]
     Route: 048
  14. PREDNISONE [Concomitant]
     Dosage: 20MG
     Route: 048
     Dates: start: 201209
  15. PREDNISONE [Concomitant]
     Route: 048
  16. VITAMIN B12 [Concomitant]
     Route: 048
  17. MVI [Concomitant]
     Dosage: 1 DAILY
     Route: 048
  18. SOMA [Concomitant]
     Indication: MUSCLE SPASMS
     Dosage: 1 TID
     Route: 048
     Dates: start: 201304
  19. CYMBALTA [Concomitant]
     Indication: DEPRESSION
     Route: 048
     Dates: end: 2009
  20. CYMBALTA [Concomitant]
     Indication: DEPRESSION
     Route: 048
  21. VICODIN [Concomitant]
     Indication: PAIN
     Dosage: 7.5/3.25MG OID
     Route: 048
     Dates: start: 2009
  22. AZOR [Concomitant]
     Indication: HYPERTENSION
     Dosage: 5/20MG
     Route: 048

REACTIONS (18)
  - Overdose [Unknown]
  - Hepatic failure [Unknown]
  - Head injury [Unknown]
  - Concussion [Unknown]
  - Memory impairment [Unknown]
  - Osteoporosis [Unknown]
  - Pneumonia [Unknown]
  - Thirst [Unknown]
  - Dry mouth [Unknown]
  - Gastrooesophageal reflux disease [Unknown]
  - Electrolyte imbalance [Unknown]
  - Balance disorder [Unknown]
  - Panic attack [Unknown]
  - Insomnia [Unknown]
  - Muscle spasms [Unknown]
  - Chronic obstructive pulmonary disease [Unknown]
  - Drug dose omission [Unknown]
  - Off label use [Unknown]
